FAERS Safety Report 6271382-3 (Version None)
Quarter: 2009Q3

REPORT INFORMATION
  Report Type: 
  Country: None (occurrence: None)
  Receive Date: 20090717
  Receipt Date: 20090703
  Transmission Date: 20100115
  Serious: Yes (Other)
  Sender: FDA-Public Use
  Company Number: GR-ROCHE-641970

PATIENT
  Age: 43 Year
  Sex: Female

DRUGS (1)
  1. INTERFERON ALFA [Suspect]
     Indication: MULTIPLE SCLEROSIS
     Route: 065

REACTIONS (4)
  - DIZZINESS [None]
  - FALL [None]
  - PARAPLEGIA [None]
  - UHTHOFF'S PHENOMENON [None]
